FAERS Safety Report 8208218-7 (Version None)
Quarter: 2012Q1

REPORT INFORMATION
  Report Type: 
  Country: None (occurrence: None)
  Receive Date: 20120314
  Receipt Date: 20120308
  Transmission Date: 20120608
  Serious: Yes (Hospitalization)
  Sender: FDA-Public Use
  Company Number: PHHY2012DE021412

PATIENT
  Sex: Female

DRUGS (1)
  1. EXTAVIA [Suspect]
     Dosage: 250 UG, UNK
     Route: 058
     Dates: start: 20110301, end: 20120302

REACTIONS (3)
  - SYNCOPE [None]
  - DYSPNOEA [None]
  - DIZZINESS [None]
